FAERS Safety Report 8214540-0 (Version None)
Quarter: 2012Q1

REPORT INFORMATION
  Report Type: 
  Country: None (occurrence: None)
  Receive Date: 20120316
  Receipt Date: 20120307
  Transmission Date: 20120608
  Serious: Yes (Other)
  Sender: FDA-Public Use
  Company Number: JP-SANOFI-AVENTIS-2010SA071400

PATIENT
  Age: 62 Year
  Sex: Male
  Weight: 60.6 kg

DRUGS (32)
  1. ZOLPIDEM [Concomitant]
     Route: 048
     Dates: start: 20090304
  2. MAGNESIUM SULFATE [Concomitant]
     Route: 048
     Dates: start: 20090305, end: 20090403
  3. MORPHINE [Concomitant]
     Dates: start: 20090306, end: 20090306
  4. CANDESARTAN CILEXETIL [Concomitant]
     Route: 048
     Dates: start: 20090310, end: 20090403
  5. MORPHINE [Concomitant]
     Dates: start: 20090302, end: 20090303
  6. DOBUTAMINE HCL [Concomitant]
     Dosage: DOSE: 50 (UNITS: UNKNOWN), DAILY DOSE: 100 (UNITS UNKNOWN)
     Dates: start: 20090307, end: 20090308
  7. PLAVIX [Concomitant]
     Route: 048
     Dates: start: 20090302, end: 20090302
  8. KETOPROFEN [Concomitant]
     Route: 062
     Dates: start: 20090305
  9. LASIX [Suspect]
     Indication: CARDIAC FAILURE CONGESTIVE
     Route: 048
     Dates: start: 20090317, end: 20090403
  10. PLAVIX [Concomitant]
     Route: 048
     Dates: start: 20090303
  11. LIPITOR [Concomitant]
     Route: 048
     Dates: start: 20090307
  12. NITROGLYCERIN [Concomitant]
     Dosage: ROUTE: UNDER TONGUE
     Dates: start: 20090425
  13. NITROGLYCERIN [Concomitant]
     Dates: start: 20090302, end: 20090302
  14. DOPAMINE HCL [Concomitant]
     Dates: start: 20090306, end: 20090308
  15. ALL OTHER THERAPEUTIC PRODUCTS [Concomitant]
     Dates: start: 20090310, end: 20090310
  16. VERAPAMIL HCL [Concomitant]
     Dates: start: 20090310, end: 20090310
  17. LASIX [Suspect]
     Route: 065
     Dates: start: 20090308, end: 20090316
  18. ASPIRIN [Concomitant]
     Route: 048
     Dates: start: 20090302, end: 20090302
  19. RABEPRAZOLE SODIUM [Concomitant]
     Indication: GASTROINTESTINAL DISORDER
     Route: 048
     Dates: start: 20090305
  20. CANDESARTAN CILEXETIL [Concomitant]
     Route: 048
     Dates: start: 20090404
  21. HEPARIN [Concomitant]
     Dosage: DOSE:3000 UNIT(S)
     Route: 042
     Dates: start: 20090302, end: 20090302
  22. METOPROLOL TARTRATE [Concomitant]
     Route: 048
     Dates: start: 20090307, end: 20090307
  23. POTASSIUM CHLORIDE [Concomitant]
     Dates: start: 20090309, end: 20090309
  24. NOREPINEPHRINE BITARTRATE [Concomitant]
     Dates: start: 20090306, end: 20090308
  25. ASPIRIN [Concomitant]
     Route: 048
     Dates: start: 20090303
  26. SOLITA T [Concomitant]
     Dates: start: 20090309, end: 20090313
  27. CEFOTIAM HYDROCHLORIDE [Concomitant]
     Indication: INFECTION PROPHYLAXIS
     Route: 042
     Dates: start: 20090306, end: 20090311
  28. DIGOXIN [Concomitant]
     Dates: start: 20090310, end: 20090310
  29. BISOPROLOL FUMARATE [Concomitant]
     Indication: ANGINA UNSTABLE
     Route: 048
     Dates: start: 20090310
  30. HEPARIN [Concomitant]
     Dosage: DOSE:5000 UNIT(S)
     Route: 042
     Dates: start: 20090302, end: 20090310
  31. NITROGLYCERIN [Concomitant]
     Dates: start: 20090303, end: 20090306
  32. ATROPINE [Concomitant]
     Dates: start: 20090306, end: 20090306

REACTIONS (3)
  - DIZZINESS POSTURAL [None]
  - HAEMATURIA TRAUMATIC [None]
  - HYPOAESTHESIA [None]
